FAERS Safety Report 4510225-2 (Version None)
Quarter: 2004Q4

REPORT INFORMATION
  Report Type: 
  Country: None (occurrence: None)
  Receive Date: 20041119
  Receipt Date: 20041108
  Transmission Date: 20050328
  Serious: Yes (Death, Hospitalization)
  Sender: FDA-Public Use
  Company Number: 087-20785-04110230

PATIENT
  Age: 66 Year
  Sex: Male

DRUGS (1)
  1. THALOMID [Suspect]
     Indication: MULTIPLE MYELOMA
     Dosage: 200 MG, QD, ORAL
     Route: 048

REACTIONS (4)
  - INTERSTITIAL LUNG DISEASE [None]
  - PNEUMONIA STAPHYLOCOCCAL [None]
  - RASH PAPULAR [None]
  - STAPHYLOCOCCAL SEPSIS [None]
